FAERS Safety Report 7852122 (Version 2)
Quarter: 2013Q2

REPORT INFORMATION
  Report Type: Report from Study
  Country: JP (occurrence: JP)
  Receive Date: 20110311
  Receipt Date: 20130415
  Transmission Date: 20140414
  Serious: Yes (Death, Life-Threatening)
  Sender: FDA-Public Use
  Company Number: JP-CELGENEUS-087-21880-11030842

PATIENT
  Age: 84 Year
  Sex: Female

DRUGS (6)
  1. REVLIMID [Suspect]
     Indication: PLASMA CELL MYELOMA
     Dosage: 5 MILLIGRAM
     Route: 048
     Dates: start: 20110207, end: 20110227
  2. LENADEX [Suspect]
     Indication: PLASMA CELL MYELOMA
     Dosage: 4 MILLIGRAM
     Route: 048
     Dates: start: 20110207, end: 20110207
  3. LENADEX [Suspect]
     Dosage: 12 MILLIGRAM
     Route: 048
     Dates: start: 20110214, end: 20110214
  4. LENADEX [Suspect]
     Dosage: 20 MILLIGRAM
     Route: 048
     Dates: start: 20110221, end: 20110221
  5. TAKEPRON [Concomitant]
     Indication: PROPHYLAXIS
     Dosage: 15 MILLIGRAM
     Route: 048
     Dates: start: 20110207, end: 20110304
  6. KELNAC [Concomitant]
     Indication: PROPHYLAXIS
     Dosage: 240 MILLIGRAM
     Route: 048
     Dates: start: 20110207, end: 20110304

REACTIONS (3)
  - Septic shock [Fatal]
  - Granulocytopenia [Not Recovered/Not Resolved]
  - Amnesia [Unknown]
